FAERS Safety Report 7564456-8 (Version None)
Quarter: 2011Q2

REPORT INFORMATION
  Report Type: 
  Country: None (occurrence: None)
  Receive Date: 20110622
  Receipt Date: 20110614
  Transmission Date: 20111010
  Serious: Yes (Life-Threatening)
  Sender: FDA-Public Use
  Company Number: PHHY2011IT52839

PATIENT
  Sex: Male

DRUGS (1)
  1. METHERGINE [Suspect]
     Dosage: 30 DRP, UNK
     Route: 048
     Dates: start: 20101226, end: 20101231

REACTIONS (8)
  - BASE EXCESS DECREASED [None]
  - RESPIRATORY ARREST [None]
  - BRADYCARDIA [None]
  - ACIDOSIS [None]
  - WRONG DRUG ADMINISTERED [None]
  - TOXICITY TO VARIOUS AGENTS [None]
  - ARTERIOSPASM CORONARY [None]
  - CARDIAC ARREST [None]
